FAERS Safety Report 7121390-5 (Version None)
Quarter: 2010Q4

REPORT INFORMATION
  Report Type: 
  Country: None (occurrence: None)
  Receive Date: 20101124
  Receipt Date: 20101112
  Transmission Date: 20110411
  Serious: Yes (Death, Life-Threatening, Hospitalization)
  Sender: FDA-Public Use
  Company Number: JP-ELI_LILLY_AND_COMPANY-JP201008001659

PATIENT
  Sex: Female
  Weight: 35.6 kg

DRUGS (20)
  1. ZYPREXA [Suspect]
     Indication: SCHIZOPHRENIA
     Dosage: 20 MG, DAILY (1/D)
     Route: 048
     Dates: start: 20100303, end: 20100420
  2. ZYPREXA [Suspect]
     Dosage: 15 MG, DAILY (1/D)
     Route: 048
     Dates: start: 20100421, end: 20100516
  3. ZYPREXA [Suspect]
     Dosage: 10 MG, DAILY (1/D)
     Route: 048
     Dates: start: 20100517, end: 20100517
  4. ABILIFY [Concomitant]
     Indication: SCHIZOPHRENIA
     Dosage: 6 MG, DAILY (1/D)
     Route: 048
     Dates: start: 20100514, end: 20100518
  5. LENDEM [Concomitant]
     Indication: SCHIZOPHRENIA
     Dosage: 0.25 MG, DAILY (1/D)
     Route: 048
     Dates: start: 20100505, end: 20100517
  6. ROHYPNOL [Concomitant]
     Indication: SCHIZOPHRENIA
     Dosage: 2 MG, DAILY (1/D)
     Route: 048
     Dates: start: 20100505, end: 20100517
  7. STERONEMA [Concomitant]
     Indication: PROCTITIS
     Dosage: 1 D/F, DAILY (1/D)
     Route: 054
     Dates: start: 20100427
  8. ULCERLMIN [Concomitant]
     Dosage: 2 D/F, DAILY (1/D)
     Route: 054
     Dates: start: 20100427
  9. MINOPHAGEN C [Concomitant]
     Dosage: 2 D/F, DAILY (1/D)
     Route: 042
     Dates: start: 20100427
  10. LINTON [Concomitant]
     Dosage: 2 MG, DAILY (1/D)
     Route: 048
     Dates: start: 20100303, end: 20100404
  11. LEMONAMIN [Concomitant]
     Dosage: 0.75 MG, 2/W
     Route: 048
     Dates: start: 20100303, end: 20100316
  12. EURODIN [Concomitant]
     Dosage: 2 MG, DAILY (1/D)
     Route: 048
     Dates: start: 20100303, end: 20100420
  13. SELBEX [Concomitant]
     Dosage: 1 D/F, 3/D
     Route: 048
     Dates: start: 20100303
  14. MILMAG [Concomitant]
     Dosage: 330 MG, 2/D
     Route: 048
     Dates: start: 20100303, end: 20100406
  15. MILMAG [Concomitant]
     Dosage: 330 MG, DAILY (1/D)
     Route: 048
     Dates: start: 20100407, end: 20100413
  16. WYPAX [Concomitant]
     Dosage: 0.5 MG, 2/D
     Route: 048
     Dates: start: 20100303
  17. LONASEN [Concomitant]
     Dosage: 2 MG, 2/D
     Route: 048
     Dates: start: 20100317, end: 20100322
  18. LONASEN [Concomitant]
     Dosage: 4 MG, 2/D
     Route: 048
     Dates: start: 20100323, end: 20100420
  19. GASTER D [Concomitant]
     Dosage: 20 MG, DAILY (1/D)
     Route: 048
     Dates: start: 20100326
  20. TRIHEXIN [Concomitant]
     Dosage: 1 D/F, 3/D
     Route: 048
     Dates: start: 20100320, end: 20100420

REACTIONS (4)
  - BLOOD GLUCOSE ABNORMAL [None]
  - DEATH [None]
  - LIVER DISORDER [None]
  - PROCTITIS [None]
